FAERS Safety Report 8321191-6 (Version None)
Quarter: 2012Q2

REPORT INFORMATION
  Report Type: 
  Country: None (occurrence: None)
  Receive Date: 20120426
  Receipt Date: 20120411
  Transmission Date: 20120825
  Serious: Yes (Hospitalization)
  Sender: FDA-Public Use
  Company Number: 2012-071

PATIENT
  Age: 29 Year
  Sex: Male
  Weight: 56 kg

DRUGS (12)
  1. AMITRIPTYLINE HCL [Concomitant]
  2. BACLOFEN [Suspect]
     Indication: PAIN
     Dosage: 41.67 UG, ONCE/HOUR, INTRATHECAL 45.84 ONCE/HOUR, INTRATHECAL
     Route: 037
     Dates: start: 20090917, end: 20100331
  3. BACLOFEN [Suspect]
     Indication: PAIN
     Dosage: 41.67 UG, ONCE/HOUR, INTRATHECAL 45.84 ONCE/HOUR, INTRATHECAL
     Route: 037
     Dates: start: 20100331, end: 20100503
  4. BACLOFEN [Suspect]
     Indication: PAIN
     Dosage: 41.67 UG, ONCE/HOUR, INTRATHECAL 45.84 ONCE/HOUR, INTRATHECAL
     Route: 037
     Dates: start: 20100503
  5. PRIALT [Suspect]
     Indication: PAIN
     Dosage: 0.21 UG, ONCE/HOUR, INTRATHECAL 0.23 UG, ONCE/HOUR, INTRATHECAL 0.25 UG, ONCE/HOUR, INTRATHECAL
     Route: 037
     Dates: start: 20070705
  6. PRIALT [Suspect]
     Indication: PAIN
     Dosage: 0.21 UG, ONCE/HOUR, INTRATHECAL 0.23 UG, ONCE/HOUR, INTRATHECAL 0.25 UG, ONCE/HOUR, INTRATHECAL
     Route: 037
     Dates: start: 20100503
  7. PRIALT [Suspect]
     Indication: PAIN
     Dosage: 0.21 UG, ONCE/HOUR, INTRATHECAL 0.23 UG, ONCE/HOUR, INTRATHECAL 0.25 UG, ONCE/HOUR, INTRATHECAL
     Route: 037
     Dates: start: 20100331, end: 20100503
  8. PRIALT [Suspect]
     Indication: PAIN
     Dosage: 0.21 UG, ONCE/HOUR, INTRATHECAL 0.23 UG, ONCE/HOUR, INTRATHECAL 0.25 UG, ONCE/HOUR, INTRATHECAL
     Route: 037
     Dates: start: 20090917, end: 20100331
  9. BONIVA [Concomitant]
  10. MIRTAZAPINE [Concomitant]
  11. GEWACALM (DIAZEPAM) [Concomitant]
  12. CYMBALTA [Concomitant]

REACTIONS (4)
  - GENERAL PHYSICAL HEALTH DETERIORATION [None]
  - GASTRITIS [None]
  - WEIGHT DECREASED [None]
  - ABDOMINAL PAIN [None]
